FAERS Safety Report 8334045-6 (Version None)
Quarter: 2012Q2

REPORT INFORMATION
  Report Type: 
  Country: None (occurrence: None)
  Receive Date: 20120503
  Receipt Date: 20120423
  Transmission Date: 20120825
  Serious: Yes (Death)
  Sender: FDA-Public Use
  Company Number: JP-ROCHE-1040559

PATIENT
  Sex: Female
  Weight: 43 kg

DRUGS (9)
  1. MERCAPTOPURINE [Concomitant]
     Indication: ACUTE PROMYELOCYTIC LEUKAEMIA
     Route: 048
     Dates: start: 20030111, end: 20030117
  2. PREDNISOLONE SODIUM SUCCINATE [Concomitant]
     Indication: ACUTE PROMYELOCYTIC LEUKAEMIA
     Route: 048
     Dates: start: 20030111, end: 20030117
  3. IDARUBICIN HYDROCHLORIDE [Concomitant]
     Route: 042
     Dates: start: 20030113, end: 20030113
  4. VESANOID [Suspect]
     Indication: ACUTE PROMYELOCYTIC LEUKAEMIA
     Route: 048
     Dates: start: 20030107, end: 20030118
  5. SUNRABIN [Concomitant]
     Indication: ACUTE PROMYELOCYTIC LEUKAEMIA
     Route: 041
     Dates: start: 20030111, end: 20030117
  6. IDARUBICIN HYDROCHLORIDE [Concomitant]
     Indication: ACUTE PROMYELOCYTIC LEUKAEMIA
     Route: 042
     Dates: start: 20030111, end: 20030111
  7. IDARUBICIN HYDROCHLORIDE [Concomitant]
     Route: 042
     Dates: start: 20030117, end: 20030117
  8. VESANOID [Suspect]
     Route: 048
     Dates: start: 20030126, end: 20030128
  9. IDARUBICIN HYDROCHLORIDE [Concomitant]
     Route: 042
     Dates: start: 20030115, end: 20030115

REACTIONS (1)
  - INTERSTITIAL LUNG DISEASE [None]
